FAERS Safety Report 9538897 (Version 1)
Quarter: 2013Q2

REPORT INFORMATION
  Report Type: Spontaneous
  Country: US (occurrence: None)
  Receive Date: 20130517
  Receipt Date: 20130517
  Transmission Date: 20140414
  Serious: Yes (Other)
  Sender: FDA-Public Use
  Company Number: 1000042567

PATIENT
  Sex: Female

DRUGS (1)
  1. VIIBRYD [Suspect]
     Route: 048

REACTIONS (2)
  - Abnormal dreams [None]
  - Amnesia [None]
